FAERS Safety Report 19129568 (Version 9)
Quarter: 2024Q1

REPORT INFORMATION
  Report Type: Spontaneous
  Country: PL (occurrence: None)
  Receive Date: 20210413
  Receipt Date: 20240201
  Transmission Date: 20240410
  Serious: Yes (Hospitalization, Other)
  Sender: FDA-Public Use
  Company Number: 2021A265010

PATIENT
  Age: 62 Year
  Sex: Male

DRUGS (21)
  1. ESOMEPRAZOLE [Suspect]
     Active Substance: ESOMEPRAZOLE
     Indication: Renal failure
     Dosage: 20.0MG UNKNOWN
  2. ESOMEPRAZOLE [Suspect]
     Active Substance: ESOMEPRAZOLE
     Indication: Antiplatelet therapy
     Dosage: 20.0MG UNKNOWN
  3. ROSUVASTATIN CALCIUM [Suspect]
     Active Substance: ROSUVASTATIN CALCIUM
     Indication: Hypertension
     Dosage: 40.0MG UNKNOWN
  4. ROSUVASTATIN CALCIUM [Suspect]
     Active Substance: ROSUVASTATIN CALCIUM
     Indication: Disease risk factor
     Dosage: 40.0MG UNKNOWN
  5. ROSUVASTATIN CALCIUM [Suspect]
     Active Substance: ROSUVASTATIN CALCIUM
     Indication: Carotid arteriosclerosis
     Dosage: 40.0MG UNKNOWN
  6. RAMIPRIL [Suspect]
     Active Substance: RAMIPRIL
     Indication: Left ventricular failure
     Dosage: 10.0MG UNKNOWN
  7. RAMIPRIL [Suspect]
     Active Substance: RAMIPRIL
     Indication: Coronary artery disease
     Dosage: 10.0MG UNKNOWN
  8. ASPIRIN [Suspect]
     Active Substance: ASPIRIN
     Indication: Carotid arteriosclerosis
     Dosage: 75 MG, ORAL SOLUTION
     Route: 048
  9. ASPIRIN [Suspect]
     Active Substance: ASPIRIN
     Indication: Postoperative care
     Dosage: 75 MG, ORAL SOLUTION
     Route: 048
  10. ASPIRIN [Suspect]
     Active Substance: ASPIRIN
     Indication: Coronary artery bypass
     Dosage: 75 MG, ORAL SOLUTION
     Route: 048
  11. AMLODIPINE [Suspect]
     Active Substance: AMLODIPINE BESYLATE
     Indication: Product used for unknown indication
     Dosage: 10/10 MG
  12. AMLODIPINE [Suspect]
     Active Substance: AMLODIPINE BESYLATE
     Indication: Product used for unknown indication
     Dosage: UNK
  13. BISOPROLOL [Suspect]
     Active Substance: BISOPROLOL\BISOPROLOL FUMARATE
     Indication: Left ventricular failure
     Dosage: 7.5 MG
  14. BISOPROLOL [Suspect]
     Active Substance: BISOPROLOL\BISOPROLOL FUMARATE
     Indication: Coronary artery disease
     Dosage: 7.5 MG
  15. PANTOPRAZOLE [Suspect]
     Active Substance: PANTOPRAZOLE
     Indication: Helicobacter gastritis
     Dosage: 80.0MG UNKNOWN
  16. PANTOPRAZOLE [Suspect]
     Active Substance: PANTOPRAZOLE
     Indication: Helicobacter gastritis
     Dosage: 40.0MG UNKNOWN
  17. AMLODIPINE\RAMIPRIL [Suspect]
     Active Substance: AMLODIPINE\RAMIPRIL
     Indication: Coronary artery disease
     Dosage: 10/10 MG
  18. AMLODIPINE\RAMIPRIL [Suspect]
     Active Substance: AMLODIPINE\RAMIPRIL
     Indication: Left ventricular failure
     Dosage: 10/10 MG
  19. AMLODIPINE\RAMIPRIL [Suspect]
     Active Substance: AMLODIPINE\RAMIPRIL
     Indication: Coronary artery disease
     Dosage: UNK
  20. AMLODIPINE\RAMIPRIL [Suspect]
     Active Substance: AMLODIPINE\RAMIPRIL
     Indication: Left ventricular failure
     Dosage: UNK
  21. CLOPIDOGREL [Concomitant]
     Active Substance: CLOPIDOGREL BISULFATE
     Indication: Postoperative care
     Dosage: UNK75.0MG UNKNOWN

REACTIONS (28)
  - Mitral valve incompetence [Unknown]
  - Left ventricular hypertrophy [Unknown]
  - Occult blood [Unknown]
  - Helicobacter gastritis [Unknown]
  - Palpitations [Unknown]
  - Carotid arteriosclerosis [Unknown]
  - Electrocardiogram Q wave abnormal [Unknown]
  - Pericardial effusion [Unknown]
  - Rales [Unknown]
  - Coronary artery disease [Unknown]
  - Aortic valve incompetence [Unknown]
  - Acute kidney injury [Unknown]
  - Tricuspid valve incompetence [Unknown]
  - Systolic dysfunction [Unknown]
  - Ventricular hypokinesia [Unknown]
  - Anaemia macrocytic [Unknown]
  - Hepatojugular reflux [Unknown]
  - Dyspnoea at rest [Unknown]
  - Angiopathy [Unknown]
  - Hyperlipidaemia [Unknown]
  - Acute myocardial infarction [Unknown]
  - Diastolic dysfunction [Unknown]
  - Left ventricular failure [Unknown]
  - Carotid artery stenosis [Unknown]
  - Ejection fraction decreased [Unknown]
  - Chronic kidney disease [Unknown]
  - Oedema peripheral [Unknown]
  - Asthenia [Unknown]

NARRATIVE: CASE EVENT DATE: 20190918
